FAERS Safety Report 19008588 (Version 1)
Quarter: 2021Q1

REPORT INFORMATION
  Report Type: Spontaneous
  Country: US (occurrence: US)
  Receive Date: 20210315
  Receipt Date: 20210315
  Transmission Date: 20210420
  Serious: Yes (Hospitalization)
  Sender: FDA-Public Use
  Company Number: US-TEVA-2021-US-1887751

PATIENT
  Age: 42 Year
  Sex: Female

DRUGS (8)
  1. AZATHIOPRINE. [Interacting]
     Active Substance: AZATHIOPRINE
     Indication: CROHN^S DISEASE
     Route: 065
  2. VEDOLIZUMAB [Concomitant]
     Active Substance: VEDOLIZUMAB
     Indication: CROHN^S DISEASE
     Route: 065
  3. ALLOPURINOL. [Interacting]
     Active Substance: ALLOPURINOL
     Indication: MIXED CONNECTIVE TISSUE DISEASE
  4. AZATHIOPRINE. [Interacting]
     Active Substance: AZATHIOPRINE
     Indication: MIXED CONNECTIVE TISSUE DISEASE
  5. VEDOLIZUMAB [Concomitant]
     Active Substance: VEDOLIZUMAB
     Indication: MIXED CONNECTIVE TISSUE DISEASE
  6. ALLOPURINOL. [Suspect]
     Active Substance: ALLOPURINOL
     Indication: CROHN^S DISEASE
     Route: 065
  7. PREDNISONE. [Concomitant]
     Active Substance: PREDNISONE
     Indication: CROHN^S DISEASE
     Route: 065
  8. PREDNISONE. [Concomitant]
     Active Substance: PREDNISONE
     Indication: MIXED CONNECTIVE TISSUE DISEASE

REACTIONS (2)
  - Aplasia pure red cell [Recovering/Resolving]
  - Drug interaction [Recovering/Resolving]
